FAERS Safety Report 7901228-6 (Version None)
Quarter: 2011Q4

REPORT INFORMATION
  Report Type: 
  Country: None (occurrence: None)
  Receive Date: 20111108
  Receipt Date: 20111025
  Transmission Date: 20120403
  Serious: Yes (Hospitalization, Other)
  Sender: FDA-Public Use
  Company Number: PHHY2011DE94854

PATIENT
  Sex: Female

DRUGS (1)
  1. FEMARA [Suspect]
     Indication: BREAST CANCER
     Route: 048
     Dates: start: 20070301

REACTIONS (8)
  - CATARACT [None]
  - HAIR GROWTH ABNORMAL [None]
  - ONYCHOMADESIS [None]
  - MUSCULAR WEAKNESS [None]
  - HERPES ZOSTER [None]
  - NERVOUS SYSTEM DISORDER [None]
  - HOT FLUSH [None]
  - SENSORY DISTURBANCE [None]
